FAERS Safety Report 14382460 (Version 1)
Quarter: 2018Q1

REPORT INFORMATION
  Report Type: Spontaneous
  Country: US (occurrence: US)
  Receive Date: 20180112
  Receipt Date: 20180112
  Transmission Date: 20180509
  Serious: Yes (Death, Other)
  Sender: FDA-Public Use
  Company Number: US-SUNOVION-2018SUN000101

PATIENT
  Age: 38 Year
  Sex: Male

DRUGS (9)
  1. OXYBUTYNIN. [Suspect]
     Active Substance: OXYBUTYNIN CHLORIDE
  2. DIPHENHYDRAMINE. [Suspect]
     Active Substance: DIPHENHYDRAMINE
  3. ALCOHOL. [Suspect]
     Active Substance: ALCOHOL
  4. VALPROIC ACID. [Suspect]
     Active Substance: VALPROIC ACID
  5. LAMOTRIGINE. [Suspect]
     Active Substance: LAMOTRIGINE
  6. METOPROLOL. [Suspect]
     Active Substance: METOPROLOL
  7. LISINOPRIL. [Suspect]
     Active Substance: LISINOPRIL
  8. ESZOPICLONE. [Suspect]
     Active Substance: ESZOPICLONE
     Route: 048
  9. TRAZODONE [Suspect]
     Active Substance: TRAZODONE HYDROCHLORIDE

REACTIONS (1)
  - Completed suicide [Fatal]
